FAERS Safety Report 7707619-0 (Version None)
Quarter: 2011Q3

REPORT INFORMATION
  Report Type: 
  Country: None (occurrence: None)
  Receive Date: 20110824
  Receipt Date: 20110811
  Transmission Date: 20111222
  Serious: No
  Sender: FDA-Public Use
  Company Number: US-B.I. PHARMACEUTICALS,INC./RIDGEFIELD-2011-BP-19893BP

PATIENT
  Sex: Female

DRUGS (10)
  1. CLARITIN [Concomitant]
     Indication: URTICARIA
     Route: 048
  2. CRANBERRY [Concomitant]
     Indication: ROUTINE HEALTH MAINTENANCE
     Dosage: 500 MG
     Route: 048
  3. ZANTAC 150 [Suspect]
     Indication: DYSPEPSIA
     Dosage: 300 MG
     Route: 048
     Dates: start: 20110601
  4. GABAPENTIN [Concomitant]
     Dosage: 900 MG
     Route: 048
  5. METOPROLOL [Concomitant]
     Indication: CARDIAC FAILURE CONGESTIVE
     Dosage: 100 MG
     Route: 048
  6. THERATEARS [Concomitant]
     Indication: OPTIC NEUROPATHY
  7. NEXIUM [Concomitant]
     Indication: GASTROOESOPHAGEAL REFLUX DISEASE
     Dosage: 40 MG
     Route: 048
  8. METOPROLOL [Concomitant]
     Indication: AORTIC ANEURYSM
  9. BIOTIN [Concomitant]
     Indication: ROUTINE HEALTH MAINTENANCE
     Dosage: 1000 MEQ
     Route: 048
  10. MIRALAX [Concomitant]
     Indication: GASTROOESOPHAGEAL REFLUX DISEASE
     Dosage: 17 G
     Route: 048

REACTIONS (1)
  - MICTURITION URGENCY [None]
